FAERS Safety Report 6654599-5 (Version None)
Quarter: 2010Q1

REPORT INFORMATION
  Report Type: 
  Country: None (occurrence: None)
  Receive Date: 20100326
  Receipt Date: 20100317
  Transmission Date: 20100710
  Serious: Yes (Hospitalization, Other)
  Sender: FDA-Public Use
  Company Number: CA-ABBOTT-10P-028-0633083-00

PATIENT
  Sex: Male
  Weight: 72.64 kg

DRUGS (2)
  1. HUMIRA [Suspect]
     Indication: CROHN'S DISEASE
     Dosage: 160 AT WEEK 0
     Route: 058
     Dates: start: 20100224, end: 20100309
  2. IMURAN [Concomitant]
     Indication: DRUG USE FOR UNKNOWN INDICATION
     Dates: start: 20100201

REACTIONS (8)
  - ABASIA [None]
  - ASTHENIA [None]
  - CROHN'S DISEASE [None]
  - DEHYDRATION [None]
  - FATIGUE [None]
  - INFECTION [None]
  - PYREXIA [None]
  - SERONEGATIVE ARTHRITIS [None]
